FAERS Safety Report 8589898-3 (Version None)
Quarter: 2012Q3

REPORT INFORMATION
  Report Type: 
  Country: None (occurrence: None)
  Receive Date: 20120813
  Receipt Date: 20120810
  Transmission Date: 20120928
  Serious: Yes (Other)
  Sender: FDA-Public Use
  Company Number: PHHY2012TR006905

PATIENT
  Age: 36 Year
  Sex: Male

DRUGS (1)
  1. SEBIVO [Suspect]
     Dates: start: 20120116

REACTIONS (1)
  - ERECTILE DYSFUNCTION [None]
